FAERS Safety Report 25129628 (Version 1)
Quarter: 2025Q1

REPORT INFORMATION
  Report Type: Spontaneous
  Country: US (occurrence: US)
  Receive Date: 20250327
  Receipt Date: 20250327
  Transmission Date: 20250409
  Serious: No
  Sender: MYLAN
  Company Number: US-MYLANLABS-2024M1084683

PATIENT
  Age: 74 Year
  Sex: Male
  Weight: 93.9 kg

DRUGS (2)
  1. XANAX [Suspect]
     Active Substance: ALPRAZOLAM
     Indication: Anxiety
     Dates: start: 20230123, end: 20250120
  2. NITROSTAT [Suspect]
     Active Substance: NITROGLYCERIN
     Indication: Chest pain
     Dates: start: 20231122, end: 20250120

REACTIONS (1)
  - Off label use [Unknown]

NARRATIVE: CASE EVENT DATE: 20230123
